FAERS Safety Report 7643498-8 (Version None)
Quarter: 2011Q3

REPORT INFORMATION
  Report Type: 
  Country: None (occurrence: None)
  Receive Date: 20110729
  Receipt Date: 20110719
  Transmission Date: 20111222
  Serious: No
  Sender: FDA-Public Use
  Company Number: US-BAYER-2011-063033

PATIENT
  Sex: Female

DRUGS (1)
  1. YAZ [Suspect]
     Indication: INFERTILITY FEMALE
     Dosage: 3 MG, UNK
     Route: 048
     Dates: start: 20010101

REACTIONS (4)
  - MALAISE [None]
  - NAUSEA [None]
  - FATIGUE [None]
  - METRORRHAGIA [None]
